FAERS Safety Report 6346693-3 (Version None)
Quarter: 2009Q3

REPORT INFORMATION
  Report Type: 
  Country: None (occurrence: None)
  Receive Date: 20090904
  Receipt Date: 20060826
  Transmission Date: 20100115
  Serious: Yes (Death, Hospitalization, Other)
  Sender: FDA-Public Use
  Company Number: 86276

PATIENT
  Age: 58 Year
  Sex: Male

DRUGS (1)
  1. CISPLATIN [Suspect]
     Dosage: 70MG/M2

REACTIONS (7)
  - HAEMODIALYSIS [None]
  - HEPATIC FAILURE [None]
  - HEPATOMEGALY [None]
  - MALIGNANT MELANOMA [None]
  - MALIGNANT NEOPLASM PROGRESSION [None]
  - TUMOUR LYSIS SYNDROME [None]
  - URINE OUTPUT DECREASED [None]
